FAERS Safety Report 16545200 (Version 1)
Quarter: 2019Q3

REPORT INFORMATION
  Report Type: Spontaneous
  Country: US (occurrence: US)
  Receive Date: 20190709
  Receipt Date: 20190709
  Transmission Date: 20191004
  Serious: No
  Sender: FDA-Public Use
  Company Number: US-BAUSCH-BL-2019-018263

PATIENT
  Age: 69 Year
  Sex: Male

DRUGS (9)
  1. PROLENSA [Suspect]
     Active Substance: BROMFENAC SODIUM
     Indication: PRODUCT USE IN UNAPPROVED INDICATION
     Dosage: AFTER SURGERY INCREASE TO 1 DROP TWICE A DAY
     Route: 047
     Dates: start: 201905, end: 2019
  2. PROLENSA [Suspect]
     Active Substance: BROMFENAC SODIUM
     Dosage: DECREASED BACK DOWN TO 1 DROP ONCE A DAY
     Route: 047
     Dates: start: 2019, end: 20190618
  3. INVELTYS [Suspect]
     Active Substance: LOTEPREDNOL ETABONATE
     Indication: PREOPERATIVE CARE
     Dosage: 1 DROP INTO RIGHT EYE TWICE A DAY
     Route: 047
     Dates: start: 20190516, end: 20190618
  4. PROLENSA [Suspect]
     Active Substance: BROMFENAC SODIUM
     Indication: PREOPERATIVE CARE
     Dosage: IN RIGHT EYE 1 DROP ONCE A DAY BEFORE SURGERY
     Route: 047
     Dates: start: 20190516, end: 201905
  5. ZETIA [Concomitant]
     Active Substance: EZETIMIBE
     Indication: PRODUCT USED FOR UNKNOWN INDICATION
  6. BESIVANCE [Suspect]
     Active Substance: BESIFLOXACIN
     Indication: PREOPERATIVE CARE
     Dosage: 1 DROP INTO RIGHT EYE TWICE A DAY
     Route: 047
     Dates: start: 20190516, end: 201906
  7. METFORMIN [Concomitant]
     Active Substance: METFORMIN HYDROCHLORIDE
     Indication: PRODUCT USED FOR UNKNOWN INDICATION
  8. LOSARTAN. [Concomitant]
     Active Substance: LOSARTAN
     Indication: PRODUCT USED FOR UNKNOWN INDICATION
  9. BESIVANCE [Suspect]
     Active Substance: BESIFLOXACIN
     Indication: PRODUCT USE IN UNAPPROVED INDICATION

REACTIONS (3)
  - Eye pain [Not Recovered/Not Resolved]
  - Product use in unapproved indication [Unknown]
  - Foreign body sensation in eyes [Not Recovered/Not Resolved]

NARRATIVE: CASE EVENT DATE: 201905
